FAERS Safety Report 4726383-0 (Version None)
Quarter: 2005Q3

REPORT INFORMATION
  Report Type: 
  Country: None (occurrence: None)
  Receive Date: 20050727
  Receipt Date: 20050711
  Transmission Date: 20060218
  Serious: No
  Sender: FDA-Public Use
  Company Number: TRP_0168_2005

PATIENT
  Age: 48 Year
  Sex: Female
  Weight: 70.3075 kg

DRUGS (12)
  1. RIBASPHERE [Suspect]
     Indication: HEPATITIS C
     Dosage: DF PO
     Route: 048
     Dates: start: 20050226
  2. PEG-INTRON [Suspect]
     Indication: HEPATITIS C
     Dosage: DF SC
     Route: 058
     Dates: start: 20050226
  3. ACETAMINOPHEN AND HYDROCODONE BITARTRATE [Concomitant]
  4. FIORICET [Concomitant]
  5. INDERAL [Concomitant]
  6. LEXAPRO [Concomitant]
  7. PROMETHAZINE HCL [Concomitant]
  8. RANITIDINE [Concomitant]
  9. SEROQUEL [Concomitant]
  10. VALIUM [Concomitant]
  11. HYDROCODONE BITARTRATE/ACETAMINOPHEN TABLETS [Concomitant]
  12. FIORICET TABLETS [Concomitant]

REACTIONS (7)
  - ABDOMINAL PAIN [None]
  - DECREASED APPETITE [None]
  - DEHYDRATION [None]
  - DIZZINESS [None]
  - DYSURIA [None]
  - LOSS OF CONSCIOUSNESS [None]
  - WEIGHT DECREASED [None]
